FAERS Safety Report 13272269 (Version 1)
Quarter: 2017Q1

REPORT INFORMATION
  Report Type: Spontaneous
  Country: US (occurrence: US)
  Receive Date: 20170224
  Receipt Date: 20170224
  Transmission Date: 20170428
  Serious: No
  Sender: FDA-Public Use
  Company Number: None

PATIENT
  Age: 46 Year
  Sex: Female

DRUGS (1)
  1. STELARA [Suspect]
     Active Substance: USTEKINUMAB
     Dosage: STELARA 90MG Q 8 WKS SUB Q
     Route: 058
     Dates: end: 20161123

REACTIONS (3)
  - Nausea [None]
  - Rash [None]
  - Vomiting [None]
